FAERS Safety Report 12092276 (Version 1)
Quarter: 2016Q1

REPORT INFORMATION
  Report Type: Spontaneous
  Country: US (occurrence: None)
  Receive Date: 20160217
  Receipt Date: 20160217
  Transmission Date: 20160526
  Serious: No
  Sender: FDA-Public Use
  Company Number: None

PATIENT
  Age: 41 Year
  Sex: Female

DRUGS (1)
  1. HUMIRA [Suspect]
     Active Substance: ADALIMUMAB
     Dates: start: 201510

REACTIONS (5)
  - Contusion [None]
  - Injection site pain [None]
  - Urticaria [None]
  - Pruritus [None]
  - Influenza like illness [None]

NARRATIVE: CASE EVENT DATE: 20151015
